FAERS Safety Report 6166219-7 (Version None)
Quarter: 2009Q2

REPORT INFORMATION
  Report Type: 
  Country: None (occurrence: None)
  Receive Date: 20090424
  Receipt Date: 20090414
  Transmission Date: 20091009
  Serious: Yes (Hospitalization, Other)
  Sender: FDA-Public Use
  Company Number: DE-JNJFOC-20080800141

PATIENT
  Sex: Male

DRUGS (1)
  1. REMICADE [Suspect]
     Indication: PSORIASIS
     Dosage: TOTAL OF TWO TO THREE INFUSIONS GIVEN
     Route: 042

REACTIONS (2)
  - AORTIC ANEURYSM RUPTURE [None]
  - EPILEPSY [None]
